FAERS Safety Report 16173460 (Version 3)
Quarter: 2020Q1

REPORT INFORMATION
  Report Type: Report from Study
  Country: GB (occurrence: GB)
  Receive Date: 20190409
  Receipt Date: 20200228
  Transmission Date: 20200409
  Serious: Yes (Hospitalization, Other)
  Sender: FDA-Public Use
  Company Number: GB-JNJFOC-20190403357

PATIENT
  Sex: Female

DRUGS (2)
  1. TRAMADOL. [Concomitant]
     Active Substance: TRAMADOL
     Route: 065
  2. STELARA [Suspect]
     Active Substance: USTEKINUMAB
     Indication: PSORIASIS
     Route: 058
     Dates: start: 20141104

REACTIONS (6)
  - Psoriasis [Not Recovered/Not Resolved]
  - Limb crushing injury [Unknown]
  - Localised infection [Unknown]
  - Haematoma [Unknown]
  - Road traffic accident [Unknown]
  - Accident [Unknown]

NARRATIVE: CASE EVENT DATE: 2019
